FAERS Safety Report 6326592-3 (Version None)
Quarter: 2009Q3

REPORT INFORMATION
  Report Type: 
  Country: None (occurrence: None)
  Receive Date: 20090825
  Receipt Date: 20071003
  Transmission Date: 20100115
  Serious: Yes (Death, Other)
  Sender: FDA-Public Use
  Company Number: US-ASTRAZENECA-2006UW21985

PATIENT
  Age: 17928 Day
  Sex: Female
  Weight: 95.7 kg

DRUGS (27)
  1. SEROQUEL [Suspect]
     Indication: INSOMNIA
     Dosage: TAKE 50 AND 75 MG AT BEDTIME, 100 - 200 AS NEEDED AT NIGHT
     Route: 048
     Dates: start: 20050809
  2. SEROQUEL [Suspect]
     Indication: SLEEP DISORDER
     Dosage: TAKE 50 AND 75 MG AT BEDTIME, 100 - 200 AS NEEDED AT NIGHT
     Route: 048
     Dates: start: 20050809
  3. SEROQUEL [Suspect]
     Route: 048
     Dates: start: 20050816, end: 20060801
  4. SEROQUEL [Suspect]
     Route: 048
     Dates: start: 20050816, end: 20060801
  5. ABILIFY [Concomitant]
  6. XANAX XR [Concomitant]
     Indication: ANXIETY
     Route: 048
     Dates: start: 20050816
  7. XANAX XR [Concomitant]
     Indication: PANIC ATTACK
     Route: 048
     Dates: start: 20050816
  8. ASPIRIN [Concomitant]
     Dates: start: 20041124
  9. ACTOS [Concomitant]
     Dates: start: 20041124
  10. ZYRTEC [Concomitant]
     Dates: start: 20041124
  11. AMBIEN [Concomitant]
     Indication: SLEEP DISORDER
     Dosage: 10 MG AT NIGHT AS NEEDED
     Dates: start: 20041124
  12. SYNTHROID [Concomitant]
     Dosage: 0.125 - 150 MCG
     Dates: start: 20041124
  13. ZOCOR [Concomitant]
     Dosage: 40 - 80 MG
     Dates: start: 20041124
  14. ZOLOFT [Concomitant]
     Dates: start: 20041124
  15. LANTUS [Concomitant]
     Dosage: 9 UNITS AT NIGHT
     Dates: start: 20041124
  16. NOVOLOG [Concomitant]
     Dosage: 45 UNITS WITH EACH MEAL APPROXIMATELY 30 MG DAILY
     Dates: start: 20041124
  17. LUNESTA [Concomitant]
     Indication: SLEEP DISORDER
     Dosage: 2 MG AT BEDTIME AS NEEDED
     Dates: start: 20051228
  18. ATACAND [Concomitant]
     Dates: start: 20051228
  19. LASIX [Concomitant]
     Dates: start: 20041117
  20. PREVACID [Concomitant]
     Dates: start: 20051228
  21. COREG [Concomitant]
     Dates: start: 20051228
  22. RISPERDAL [Concomitant]
     Dates: start: 20060728
  23. AGGRENOX [Concomitant]
     Dosage: TWO TIMES A DAY
     Dates: start: 20060714
  24. MICARDIS [Concomitant]
     Dates: start: 20060530
  25. CYMBALTA [Concomitant]
     Dates: start: 20060530
  26. KLONOPIN [Concomitant]
     Indication: ANXIETY
     Dosage: 0.5 MG AT NIGHT AS NEEDED
     Dates: start: 20060530
  27. HYDRALAZINE HCL [Concomitant]
     Dosage: 25 MG DAILY 8 HOURLY
     Dates: start: 20060530

REACTIONS (5)
  - CHOLECYSTITIS ACUTE [None]
  - DEATH [None]
  - DIABETIC COMA [None]
  - SEPSIS SYNDROME [None]
  - URINARY TRACT INFECTION [None]
